FAERS Safety Report 20742973 (Version 3)
Quarter: 2022Q3

REPORT INFORMATION
  Report Type: Spontaneous
  Country: JP (occurrence: JP)
  Receive Date: 20220425
  Receipt Date: 20220926
  Transmission Date: 20221027
  Serious: Yes (Death)
  Sender: FDA-Public Use
  Company Number: JP-JNJFOC-20220446177

PATIENT
  Age: 69 Year
  Sex: Male
  Weight: 60.3 kg

DRUGS (14)
  1. RISPERDAL [Suspect]
     Active Substance: RISPERIDONE
     Indication: Delirium
     Dosage: OFF-LABEL USE 11 RISPERIDONE:1MG/ML
     Route: 048
     Dates: start: 20220420, end: 20220420
  2. SOLACET D [Concomitant]
     Indication: Cardiac failure
     Dosage: START FROM 0:00 AND CONTINUE 8 HOURS
     Route: 041
     Dates: start: 20220416
  3. LASIX [Concomitant]
     Active Substance: FUROSEMIDE
     Indication: Cardiac failure
     Route: 042
     Dates: start: 20220416
  4. ELEJECT [Concomitant]
     Indication: Malnutrition
     Dosage: 1 BARREL, START FROM 0:00 AND CONTINUE 24 HOURS
     Route: 041
     Dates: start: 20220420
  5. ROCEPHIN [Concomitant]
     Active Substance: CEFTRIAXONE SODIUM
     Indication: Bacterial infection
     Dosage: IN THE MORNING
     Route: 041
     Dates: start: 20220415
  6. CARBAZOCHROME SODIUM SULFONATE [Concomitant]
     Active Substance: CARBAZOCHROME SODIUM SULFONATE
     Indication: Haemorrhagic diathesis
     Dosage: THE MORNING
     Route: 041
     Dates: start: 20220417
  7. SODIUM CHLORIDE [Concomitant]
     Active Substance: SODIUM CHLORIDE
     Indication: Haemorrhagic diathesis
     Route: 041
     Dates: start: 20220417
  8. SODIUM CHLORIDE [Concomitant]
     Active Substance: SODIUM CHLORIDE
     Indication: Hyperglycaemia
     Dosage: IN THE MORNING
     Route: 041
     Dates: start: 20220419
  9. SODIUM CHLORIDE [Concomitant]
     Active Substance: SODIUM CHLORIDE
     Dosage: IN THE MORNING, 1ML/H, NS=49.5ML TOTAL=50ML
     Route: 041
     Dates: start: 20220420
  10. DOPAMINE HYDROCHLORIDE [Concomitant]
     Active Substance: DOPAMINE HYDROCHLORIDE
     Indication: Circulatory collapse
     Route: 041
     Dates: start: 20220416
  11. ALBUMIN HUMAN [Concomitant]
     Active Substance: ALBUMIN HUMAN
     Indication: Generalised oedema
     Route: 041
     Dates: start: 20220419
  12. PREDNISOLONE SODIUM SUCCINATE [Concomitant]
     Active Substance: PREDNISOLONE SODIUM SUCCINATE
     Indication: Vasculitis
     Dosage: IN THE MORNING
     Route: 041
     Dates: start: 20220419
  13. HUMULIN R [Concomitant]
     Active Substance: INSULIN HUMAN
     Indication: Hyperglycaemia
     Dosage: IN THE MORNING, 1ML/H
     Route: 041
     Dates: start: 20220420
  14. HUMALOG [Concomitant]
     Active Substance: INSULIN LISPRO
     Indication: Hyperglycaemia
     Dosage: RIGHT BEFORE BREAKFAST
     Route: 058
     Dates: start: 20220415

REACTIONS (3)
  - Cardiac arrest [Fatal]
  - Product use in unapproved indication [Unknown]
  - Off label use [Unknown]

NARRATIVE: CASE EVENT DATE: 20220420
